FAERS Safety Report 6801455-5 (Version None)
Quarter: 2010Q2

REPORT INFORMATION
  Report Type: 
  Country: None (occurrence: None)
  Receive Date: 20100629
  Receipt Date: 20100622
  Transmission Date: 20101027
  Serious: Yes (Death)
  Sender: FDA-Public Use
  Company Number: DE-ROCHE-710939

PATIENT
  Age: 62 Year
  Sex: Female

DRUGS (1)
  1. BONIVA [Suspect]
     Indication: OSTEOPOROSIS
     Dosage: FORM: INTRAVENOUS (NOT OTHERWISE SPECIFIED), STRENGTH: 3 MG/3 ML 6TH DOSE
     Route: 042
     Dates: start: 20091001

REACTIONS (1)
  - ANAPHYLACTIC REACTION [None]
